FAERS Safety Report 25606745 (Version 1)
Quarter: 2025Q3

REPORT INFORMATION
  Report Type: Spontaneous
  Country: US (occurrence: US)
  Receive Date: 20250725
  Receipt Date: 20250725
  Transmission Date: 20251020
  Serious: Yes (Death, Life-Threatening, Hospitalization)
  Sender: AMGEN
  Company Number: US-AMGEN-USASP2025142692

PATIENT
  Age: 25 Year
  Sex: Female

DRUGS (4)
  1. RITUXIMAB [Suspect]
     Active Substance: RITUXIMAB
     Indication: Antiphospholipid syndrome
     Route: 065
  2. METHYLPREDNISOLONE [Concomitant]
     Active Substance: METHYLPREDNISOLONE
  3. HUMAN PLASMA [Concomitant]
     Active Substance: HUMAN PLASMA
  4. HUMAN PLASMA [Concomitant]
     Active Substance: HUMAN PLASMA

REACTIONS (9)
  - Shock [Fatal]
  - Septic shock [Unknown]
  - Bacteraemia [Unknown]
  - Pneumonia [Unknown]
  - Lung abscess [Unknown]
  - Empyema [Unknown]
  - Thrombocytopenia [Unknown]
  - Fungaemia [Unknown]
  - Off label use [Unknown]
